FAERS Safety Report 4689610-4 (Version None)
Quarter: 2005Q2

REPORT INFORMATION
  Report Type: 
  Country: None (occurrence: None)
  Receive Date: 20050607
  Receipt Date: 20050322
  Transmission Date: 20051028
  Serious: Yes (Disabling)
  Sender: FDA-Public Use
  Company Number: DSA_26165_2005

PATIENT
  Sex: Female

DRUGS (1)
  1. CARDIZEM LA [Suspect]
     Dosage: DF
     Dates: start: 20040101, end: 20050301

REACTIONS (5)
  - ARTHRALGIA [None]
  - ASTHENIA [None]
  - MUSCLE SPASMS [None]
  - PAIN [None]
  - PITTING OEDEMA [None]
